FAERS Safety Report 9997666 (Version 1)
Quarter: 2014Q1

REPORT INFORMATION
  Report Type: Spontaneous
  Country: US (occurrence: US)
  Receive Date: 20140311
  Receipt Date: 20140311
  Transmission Date: 20141002
  Serious: No
  Sender: FDA-Public Use
  Company Number: US-PFIZER INC-2014065662

PATIENT
  Age: 44 Year
  Sex: Female

DRUGS (1)
  1. GENOTROPIN MQ [Suspect]
     Indication: DWARFISM
     Dosage: 1 MG, DAILY
     Dates: start: 20140210

REACTIONS (3)
  - Local swelling [Unknown]
  - Arthralgia [Unknown]
  - Pain [Unknown]
